FAERS Safety Report 6551377-2 (Version None)
Quarter: 2010Q1

REPORT INFORMATION
  Report Type: 
  Country: None (occurrence: None)
  Receive Date: 20100126
  Receipt Date: 20100121
  Transmission Date: 20100710
  Serious: Yes (Other)
  Sender: FDA-Public Use
  Company Number: AL-ROCHE-678913

PATIENT
  Sex: Male
  Weight: 56.5 kg

DRUGS (6)
  1. PEG-INTERFERON ALFA 2A (RO 25-8310) [Suspect]
     Indication: HEPATITIS C
     Route: 058
     Dates: start: 20091014
  2. PEG-INTERFERON ALFA 2A (RO 25-8310) [Suspect]
     Dosage: DOSE REDUCED
     Route: 058
     Dates: start: 20100112
  3. RIBAVIRIN [Suspect]
     Indication: HEPATITIS C
     Dosage: FREQUENCY : DAILY
     Route: 048
     Dates: start: 20091014
  4. RIBAVIRIN [Suspect]
     Dosage: ON 28 DECEMBER 2009, DOSE WAS REDUCED TO 600 MG
     Route: 048
     Dates: start: 20091228
  5. BIOFLOR [Concomitant]
     Route: 048
     Dates: start: 20091228
  6. IMODIUM [Concomitant]
     Route: 048
     Dates: start: 20091228

REACTIONS (1)
  - CHRONIC OBSTRUCTIVE PULMONARY DISEASE [None]
